FAERS Safety Report 4737148-8 (Version None)
Quarter: 2005Q3

REPORT INFORMATION
  Report Type: 
  Country: None (occurrence: None)
  Receive Date: 20050728
  Receipt Date: 20050427
  Transmission Date: 20060218
  Serious: No
  Sender: FDA-Public Use
  Company Number: 200513628US

PATIENT
  Sex: Female

DRUGS (1)
  1. KETEK [Suspect]

REACTIONS (5)
  - ABNORMAL SENSATION IN EYE [None]
  - ANXIETY [None]
  - EYE PRURITUS [None]
  - HEART RATE INCREASED [None]
  - OCULAR HYPERAEMIA [None]
